FAERS Safety Report 16847715 (Version 2)
Quarter: 2020Q1

REPORT INFORMATION
  Report Type: Other
  Country: US (occurrence: US)
  Receive Date: 20190924
  Receipt Date: 20200324
  Transmission Date: 20200409
  Serious: No
  Sender: FDA-Public Use
  Company Number: US-ACORDA-ACO_161062_2019

PATIENT
  Sex: Female
  Weight: 85.26 kg

DRUGS (1)
  1. INBRIJA [Suspect]
     Active Substance: LEVODOPA
     Indication: PARKINSON^S DISEASE
     Dosage: 42 MILLIGRAM, 2 CAPSULES, PRN, UP TO 5 TIMES PER DAY AS NEEDED
     Dates: start: 201909, end: 201909

REACTIONS (3)
  - Product residue present [Unknown]
  - Cough [Unknown]
  - Retching [Unknown]
